FAERS Safety Report 4462392-7 (Version None)
Quarter: 2004Q3

REPORT INFORMATION
  Report Type: 
  Country: None (occurrence: None)
  Receive Date: 20040928
  Receipt Date: 20040914
  Transmission Date: 20050211
  Serious: Yes (Other)
  Sender: FDA-Public Use
  Company Number: STA-AE-04-MTX-423

PATIENT

DRUGS (2)
  1. METHOTREXATE [Suspect]
  2. ENBREL [Suspect]
     Dosage: SC
     Route: 058

REACTIONS (1)
  - OESOPHAGEAL CARCINOMA [None]
